FAERS Safety Report 4432414-8 (Version None)
Quarter: 2004Q3

REPORT INFORMATION
  Report Type: 
  Country: None (occurrence: None)
  Receive Date: 20040825
  Receipt Date: 20040812
  Transmission Date: 20050211
  Serious: Yes (Other)
  Sender: FDA-Public Use
  Company Number: CH-GLAXOSMITHKLINE-B0342944A

PATIENT
  Age: 81 Year
  Sex: Female
  Weight: 55 kg

DRUGS (8)
  1. AUGMENTIN '125' [Suspect]
     Indication: HELICOBACTER INFECTION
     Dosage: 1G TWICE PER DAY
     Route: 048
     Dates: start: 20040225, end: 20040226
  2. CLARITHROMYCIN [Suspect]
     Indication: HELICOBACTER INFECTION
     Dosage: 500MG TWICE PER DAY
     Route: 048
     Dates: start: 20040225, end: 20040226
  3. APROVEL [Concomitant]
     Route: 048
  4. NORVASC [Concomitant]
  5. ASPIRIN [Concomitant]
     Route: 048
  6. ATORVASTATIN CALCIUM [Concomitant]
  7. CALCIUM SANDOZ [Concomitant]
  8. NEXIUM [Concomitant]

REACTIONS (5)
  - BLOOD SODIUM DECREASED [None]
  - HALLUCINATION [None]
  - LOGORRHOEA [None]
  - PSYCHOTIC DISORDER [None]
  - URINARY RETENTION [None]
